FAERS Safety Report 7332900-7 (Version None)
Quarter: 2011Q1

REPORT INFORMATION
  Report Type: 
  Country: None (occurrence: None)
  Receive Date: 20110304
  Receipt Date: 20110221
  Transmission Date: 20110831
  Serious: Yes (Hospitalization)
  Sender: FDA-Public Use
  Company Number: DE-ACTELION-A-CH2011-45358

PATIENT
  Age: 72 Year
  Sex: Male
  Weight: 60 kg

DRUGS (7)
  1. DECORTIN [Concomitant]
  2. TRACLEER [Suspect]
     Indication: SKIN ULCER
     Dosage: 62.5 MG, BID
     Route: 048
     Dates: start: 20100716, end: 20101101
  3. PANTOZOL [Concomitant]
  4. TOREM [Concomitant]
  5. LORMETAZEPAM [Concomitant]
  6. BLOPRESS [Concomitant]
  7. ASPIRIN [Concomitant]

REACTIONS (5)
  - DISEASE PROGRESSION [None]
  - WEIGHT DECREASED [None]
  - OEDEMA PERIPHERAL [None]
  - DYSPNOEA [None]
  - EXTREMITY NECROSIS [None]
